FAERS Safety Report 5304899-6 (Version None)
Quarter: 2007Q2

REPORT INFORMATION
  Report Type: 
  Country: None (occurrence: None)
  Receive Date: 20070417
  Receipt Date: 20070403
  Transmission Date: 20071010
  Serious: Yes (Life-Threatening, Hospitalization, Other)
  Sender: FDA-Public Use
  Company Number: PAR_1494_2007

PATIENT
  Age: 28 Year
  Sex: Male

DRUGS (5)
  1. IBUPROFEN [Suspect]
     Indication: INTENTIONAL OVERDOSE
     Dosage: DF UNK PO
     Route: 048
  2. ACETAMINOPHEN [Suspect]
     Indication: INTENTIONAL OVERDOSE
     Dosage: 250 G UNK PO
     Route: 048
  3. HALOPERIDOL [Concomitant]
  4. ZIPRASIDONE HCL [Concomitant]
  5. LITHIUM CARBONATE [Concomitant]

REACTIONS (17)
  - ACUTE HEPATIC FAILURE [None]
  - AGITATION [None]
  - COAGULOPATHY [None]
  - COLITIS [None]
  - DRUG TOXICITY [None]
  - DYSPNOEA [None]
  - GASTROINTESTINAL NECROSIS [None]
  - HAEMODIALYSIS [None]
  - HAEMODYNAMIC INSTABILITY [None]
  - HEPATIC NECROSIS [None]
  - HYPOTENSION [None]
  - INTESTINAL HAEMORRHAGE [None]
  - LIVER TRANSPLANT [None]
  - METABOLIC ACIDOSIS [None]
  - MULTIPLE DRUG OVERDOSE INTENTIONAL [None]
  - RENAL FAILURE ACUTE [None]
  - RHABDOMYOLYSIS [None]
